FAERS Safety Report 18685356 (Version 1)
Quarter: 2020Q4

REPORT INFORMATION
  Report Type: Spontaneous
  Country: US (occurrence: US)
  Receive Date: 20201230
  Receipt Date: 20201230
  Transmission Date: 20210114
  Serious: No
  Sender: FDA-Public Use
  Company Number: US-SUNOVION-2020SUN003816

PATIENT
  Sex: Female

DRUGS (2)
  1. LATUDA [Suspect]
     Active Substance: LURASIDONE HYDROCHLORIDE
     Indication: SCHIZOPHRENIA
     Dosage: 40 MG
     Route: 048
     Dates: start: 20201120, end: 20201214
  2. TRILEPTAL [Suspect]
     Active Substance: OXCARBAZEPINE
     Indication: SCHIZOPHRENIA

REACTIONS (8)
  - Insomnia [Unknown]
  - Renal pain [Unknown]
  - Hypotension [Unknown]
  - Weight decreased [Unknown]
  - Dizziness [Unknown]
  - Abdominal pain upper [Unknown]
  - Body temperature fluctuation [Unknown]
  - Chest discomfort [Unknown]
